FAERS Safety Report 6363603-3 (Version None)
Quarter: 2009Q3

REPORT INFORMATION
  Report Type: 
  Country: None (occurrence: None)
  Receive Date: 20090919
  Receipt Date: 20090630
  Transmission Date: 20100115
  Serious: No
  Sender: FDA-Public Use
  Company Number: US-ABBOTT-09P-163-0583006-00

PATIENT
  Sex: Female
  Weight: 93.07 kg

DRUGS (10)
  1. HUMIRA [Suspect]
     Indication: ANKYLOSING SPONDYLITIS
     Route: 058
     Dates: start: 20090619, end: 20090619
  2. HUMIRA [Suspect]
     Indication: PSORIATIC ARTHROPATHY
  3. ATENOLOL [Concomitant]
     Indication: HYPERTENSION
  4. AVILIDE [Concomitant]
     Indication: HYPERTENSION
  5. ALLEGRA [Concomitant]
     Indication: HYPERSENSITIVITY
  6. ESTRATEST [Concomitant]
     Indication: HORMONE REPLACEMENT THERAPY
  7. OXYCONTIN [Concomitant]
     Indication: DRUG USE FOR UNKNOWN INDICATION
  8. OXYCONTIN [Concomitant]
  9. FLEXERIL [Concomitant]
     Indication: DRUG USE FOR UNKNOWN INDICATION
  10. HYDROCODONE [Concomitant]
     Indication: DRUG USE FOR UNKNOWN INDICATION

REACTIONS (2)
  - MUSCULOSKELETAL STIFFNESS [None]
  - NECK PAIN [None]
